FAERS Safety Report 6612248-6 (Version None)
Quarter: 2010Q1

REPORT INFORMATION
  Report Type: 
  Country: None (occurrence: None)
  Receive Date: 20100303
  Receipt Date: 20100223
  Transmission Date: 20100710
  Serious: Yes (Hospitalization)
  Sender: FDA-Public Use
  Company Number: JP-ROCHE-687804

PATIENT
  Sex: Female

DRUGS (24)
  1. TOCILIZUMAB [Suspect]
     Indication: RHEUMATOID ARTHRITIS
     Route: 041
     Dates: start: 20090209, end: 20090209
  2. TOCILIZUMAB [Suspect]
     Route: 041
     Dates: start: 20090309, end: 20090309
  3. TOCILIZUMAB [Suspect]
     Route: 041
     Dates: start: 20090406, end: 20090406
  4. TOCILIZUMAB [Suspect]
     Route: 041
     Dates: start: 20090511, end: 20090511
  5. TOCILIZUMAB [Suspect]
     Route: 041
     Dates: start: 20090615, end: 20090615
  6. TOCILIZUMAB [Suspect]
     Route: 041
     Dates: start: 20090713, end: 20090713
  7. TOCILIZUMAB [Suspect]
     Route: 041
     Dates: start: 20090812, end: 20090812
  8. TOCILIZUMAB [Suspect]
     Route: 041
     Dates: start: 20090909, end: 20090909
  9. TOCILIZUMAB [Suspect]
     Route: 041
     Dates: start: 20091007, end: 20091007
  10. TOCILIZUMAB [Suspect]
     Route: 041
     Dates: start: 20091104, end: 20091104
  11. TOCILIZUMAB [Suspect]
     Route: 041
     Dates: start: 20091202, end: 20091202
  12. TOCILIZUMAB [Suspect]
     Dosage: DRUG DISCONTINUED
     Route: 041
     Dates: start: 20100105, end: 20100105
  13. PREDNISOLONE [Suspect]
     Indication: RHEUMATOID ARTHRITIS
     Dosage: DOSE FORM: PERORAL AGENT
     Route: 048
     Dates: start: 20090107, end: 20090405
  14. PREDNISOLONE [Suspect]
     Route: 048
     Dates: start: 20090406, end: 20090510
  15. PREDNISOLONE [Suspect]
     Route: 048
     Dates: start: 20090511, end: 20091006
  16. PREDNISOLONE [Suspect]
     Route: 048
     Dates: start: 20091007, end: 20091201
  17. PREDNISOLONE [Suspect]
     Route: 048
     Dates: start: 20091202, end: 20100104
  18. PREDNISOLONE [Suspect]
     Route: 048
     Dates: start: 20100105
  19. AZULFIDINE [Concomitant]
     Dosage: DOSE FORM: ENTERIC COTING DURG.
     Route: 048
     Dates: start: 20090107, end: 20100210
  20. LOXONIN [Concomitant]
     Route: 048
     Dates: start: 20090107
  21. MUCOSTA [Concomitant]
     Dosage: DOSE FORM: PERORAL AGENT
     Route: 048
     Dates: start: 20090107, end: 20090405
  22. MUCOSTA [Concomitant]
     Route: 048
     Dates: start: 20090406
  23. INSULIN [Concomitant]
     Route: 058
     Dates: start: 20090509, end: 20090529
  24. INSULIN [Concomitant]
     Route: 058
     Dates: start: 20090530

REACTIONS (2)
  - DECUBITUS ULCER [None]
  - TUBERCULOUS PLEURISY [None]
